FAERS Safety Report 5252033-3 (Version None)
Quarter: 2007Q1

REPORT INFORMATION
  Report Type: 
  Country: None (occurrence: None)
  Receive Date: 20070226
  Receipt Date: 20060725
  Transmission Date: 20070707
  Serious: Yes (Hospitalization)
  Sender: FDA-Public Use
  Company Number: DSA_29394_2007

PATIENT
  Age: 76 Year
  Sex: Female

DRUGS (16)
  1. DILZEM [Suspect]
     Indication: ESSENTIAL HYPERTENSION
     Dosage: 120 MG BID PO
     Route: 048
     Dates: start: 20060331
  2. NITRODERM [Suspect]
     Indication: ESSENTIAL HYPERTENSION
     Dosage: 10 MG PER24HR TD
     Route: 062
     Dates: start: 20060324, end: 20060326
  3. NITRODERM [Suspect]
     Indication: ESSENTIAL HYPERTENSION
     Dosage: 10 MG PER24HR TD
     Route: 062
     Dates: start: 20060405, end: 20060429
  4. PERLINGANIT [Suspect]
     Indication: ESSENTIAL HYPERTENSION
     Dosage: VAR CON IV
     Route: 042
     Dates: start: 20060327, end: 20060329
  5. TRAMADOL HCL [Suspect]
     Indication: PAIN
     Dosage: VAR Q DAY PO
     Route: 048
     Dates: start: 20060324, end: 20060406
  6. MYSOLINE [Suspect]
     Indication: EPILEPSY
     Dosage: 250 MG TID PO
     Route: 048
  7. VITARUBIN [Concomitant]
  8. VALPROIC ACID [Concomitant]
  9. OXAZEPAM [Concomitant]
  10. DAFALGAN [Concomitant]
  11. COVERSUM COMBI [Concomitant]
  12. LORAZEPAM [Concomitant]
  13. PHYSIOTENS [Concomitant]
  14. VENTOLIN [Concomitant]
  15. CO-RENITEN [Concomitant]
  16. RENITEN [Concomitant]

REACTIONS (3)
  - DRUG INTERACTION [None]
  - HYPERTENSION [None]
  - HYPONATRAEMIA [None]
